FAERS Safety Report 7380798-3 (Version None)
Quarter: 2011Q1

REPORT INFORMATION
  Report Type: 
  Country: None (occurrence: None)
  Receive Date: 20110329
  Receipt Date: 20110323
  Transmission Date: 20110831
  Serious: Yes (Hospitalization)
  Sender: FDA-Public Use
  Company Number: A0899103A

PATIENT
  Age: 56 Year
  Sex: Male

DRUGS (1)
  1. AVANDARYL [Suspect]
     Route: 048
     Dates: start: 20061001, end: 20090201

REACTIONS (5)
  - CORONARY ARTERY DISEASE [None]
  - MYOCARDIAL INFARCTION [None]
  - ISCHAEMIA [None]
  - CORONARY ARTERIAL STENT INSERTION [None]
  - CARDIOVASCULAR DISORDER [None]
